FAERS Safety Report 9963228 (Version 1)
Quarter: 2014Q1

REPORT INFORMATION
  Report Type: Report from Study
  Country: US (occurrence: US)
  Receive Date: 20140305
  Receipt Date: 20140305
  Transmission Date: 20141002
  Serious: No
  Sender: FDA-Public Use
  Company Number: US-ABBVIE-13P-163-1112738-00

PATIENT
  Age: 25 Year
  Sex: Male

DRUGS (5)
  1. HUMIRA [Suspect]
     Indication: PSORIASIS
     Dates: start: 201304
  2. CLARITIN [Concomitant]
     Indication: SEASONAL ALLERGY
  3. ZANTAC [Concomitant]
     Indication: DYSPEPSIA
  4. UNKNOWN TOPICAL CREAM [Concomitant]
     Indication: PSORIASIS
     Route: 061
  5. TUMS [Concomitant]
     Indication: DYSPEPSIA

REACTIONS (1)
  - Injection site bruising [Recovered/Resolved]
